FAERS Safety Report 6288608-2 (Version None)
Quarter: 2009Q3

REPORT INFORMATION
  Report Type: 
  Country: None (occurrence: None)
  Receive Date: 20090729
  Receipt Date: 20090721
  Transmission Date: 20100115
  Serious: Yes (Hospitalization, Other)
  Sender: FDA-Public Use
  Company Number: JP-ASTRAZENECA-2009SE02067

PATIENT
  Age: 71 Year
  Sex: Male

DRUGS (2)
  1. CASODEX [Suspect]
     Indication: PROSTATE CANCER
     Route: 048
     Dates: start: 20060101
  2. LEUPLIN [Suspect]
     Indication: PROSTATE CANCER
     Route: 058

REACTIONS (1)
  - BREAST CANCER MALE [None]
